FAERS Safety Report 15277784 (Version 5)
Quarter: 2018Q4

REPORT INFORMATION
  Report Type: Spontaneous
  Country: US (occurrence: US)
  Receive Date: 20180814
  Receipt Date: 20181011
  Transmission Date: 20190204
  Serious: Yes (Other)
  Sender: FDA-Public Use
  Company Number: US-PFIZER INC-2018316867

PATIENT
  Age: 13 Year
  Sex: Male
  Weight: 31 kg

DRUGS (5)
  1. GENOTROPIN [Suspect]
     Active Substance: SOMATROPIN
     Indication: GROWTH HORMONE DEFICIENCY
     Dosage: 1.4 MG, UNK
     Route: 058
     Dates: start: 2017, end: 201807
  2. GENOTROPIN [Suspect]
     Active Substance: SOMATROPIN
     Dosage: 1.5 MG, UNK
  3. GENOTROPIN [Suspect]
     Active Substance: SOMATROPIN
     Dosage: 1.3 MG, DAILY
     Dates: start: 201707
  4. GENOTROPIN [Suspect]
     Active Substance: SOMATROPIN
     Dosage: 1.5 MG, 1X/DAY (1 TIME PER DAY)
     Route: 058
     Dates: start: 201807, end: 20180801
  5. GENOTROPIN [Suspect]
     Active Substance: SOMATROPIN
     Dosage: UNK

REACTIONS (4)
  - Product dose omission [Unknown]
  - Lennox-Gastaut syndrome [Unknown]
  - Furuncle [Unknown]
  - Device issue [Unknown]

NARRATIVE: CASE EVENT DATE: 20180802
